FAERS Safety Report 4765749-X (Version None)
Quarter: 2005Q3

REPORT INFORMATION
  Report Type: 
  Country: None (occurrence: None)
  Receive Date: 20050906
  Receipt Date: 20050829
  Transmission Date: 20060218
  Serious: Yes (Death, Hospitalization)
  Sender: FDA-Public Use
  Company Number: 2005-06-0055

PATIENT
  Age: 64 Year
  Sex: Female
  Weight: 35 kg

DRUGS (4)
  1. TEMODAL [Suspect]
     Indication: GLIOBLASTOMA
     Dosage: 75 MG/M^2 ORAL
     Route: 048
  2. BACTRIM DS [Suspect]
     Indication: PROPHYLAXIS
     Dosage: 1 QD ORAL
     Route: 048
  3. RADIATION THERAPY [Concomitant]
  4. DEPAKINE CHRONO (SODIUM VALPROATE) [Concomitant]

REACTIONS (3)
  - FEBRILE BONE MARROW APLASIA [None]
  - POST PROCEDURAL COMPLICATION [None]
  - SEPTIC SHOCK [None]
